FAERS Safety Report 9564395 (Version 3)
Quarter: 2013Q4

REPORT INFORMATION
  Report Type: Report from Study
  Country: AU (occurrence: AU)
  Receive Date: 20130930
  Receipt Date: 20131028
  Transmission Date: 20140711
  Serious: Yes (Other)
  Sender: FDA-Public Use
  Company Number: AU-BIOGENIDEC-2013BI091797

PATIENT
  Age: 50 Year
  Sex: Male

DRUGS (7)
  1. TYSABRI [Suspect]
     Indication: RELAPSING-REMITTING MULTIPLE SCLEROSIS
     Route: 042
     Dates: start: 20100220, end: 20110812
  2. FINGOLIMOD [Concomitant]
     Indication: MULTIPLE SCLEROSIS
     Dates: start: 20111112
  3. ASPIRIN [Concomitant]
     Indication: CARDIAC DISORDER
     Route: 048
     Dates: start: 20100101
  4. TOPAMAX [Concomitant]
     Indication: PAIN
     Route: 048
     Dates: start: 20100101
  5. TRILEPTAL [Concomitant]
     Indication: PAIN
     Route: 048
     Dates: start: 20100101
  6. FURSEMIDE [Concomitant]
     Indication: DIURETIC THERAPY
     Route: 048
     Dates: start: 20100101
  7. POTASSIUM [Concomitant]
     Indication: SUPPLEMENTATION THERAPY
     Route: 048
     Dates: start: 20100101

REACTIONS (1)
  - Basal cell carcinoma [Recovered/Resolved]
